FAERS Safety Report 8998178 (Version 2)
Quarter: 2013Q1

REPORT INFORMATION
  Report Type: Report from Study
  Country: US (occurrence: US)
  Receive Date: 20130104
  Receipt Date: 20130108
  Transmission Date: 20140127
  Serious: Yes (Hospitalization)
  Sender: FDA-Public Use
  Company Number: US-ROCHE-1043809

PATIENT
  Age: 57 Year
  Sex: Female
  Weight: 85.3 kg

DRUGS (4)
  1. ADO-TRASTUZUMAB EMTANSINE [Suspect]
     Indication: BREAST CANCER
     Dosage: LAST DOSE PRIOR TO THE EVENT: 24/FEB/2012
     Route: 042
     Dates: start: 20120224, end: 20120224
  2. OMEGA XL [Concomitant]
     Route: 065
     Dates: start: 20120130
  3. MULTIVITAMIN [Concomitant]
     Route: 065
     Dates: start: 20120130
  4. PERTUZUMAB [Suspect]
     Indication: BREAST CANCER
     Dosage: LAST DOSE PRIOR TO THE EVENT:24/FEB/2012
     Route: 042
     Dates: start: 20120224, end: 20120224

REACTIONS (1)
  - Hypersensitivity [Recovered/Resolved]
